FAERS Safety Report 25510840 (Version 1)
Quarter: 2025Q3

REPORT INFORMATION
  Report Type: Spontaneous
  Country: US (occurrence: US)
  Receive Date: 20250703
  Receipt Date: 20250703
  Transmission Date: 20251021
  Serious: Yes (Other)
  Sender: HIKMA
  Company Number: US-HIKMA PHARMACEUTICALS USA INC.-US-H14001-25-08069

PATIENT
  Age: 76 Year
  Sex: Female
  Weight: 52.8 kg

DRUGS (13)
  1. AMIKACIN [Suspect]
     Active Substance: AMIKACIN
     Indication: Mycobacterial infection
     Dosage: UNK, TIW
     Route: 042
     Dates: start: 20240807, end: 20240923
  2. NUZYRA [Suspect]
     Active Substance: OMADACYCLINE
     Indication: Mycobacterial infection
     Dosage: 300 MILLIGRAM, QD, AT BEDTIME
     Route: 048
     Dates: start: 20240807, end: 20240830
  3. NUZYRA [Suspect]
     Active Substance: OMADACYCLINE
     Dosage: 300 MILLIGRAM, QD
     Route: 048
     Dates: start: 20240909, end: 20241004
  4. NUZYRA [Suspect]
     Active Substance: OMADACYCLINE
     Dosage: 150 MILLIGRAM, QD AT BEDTIME
     Route: 048
     Dates: start: 20250121, end: 20250211
  5. ATORVASTATIN [Concomitant]
     Active Substance: ATORVASTATIN
     Indication: Product used for unknown indication
     Route: 065
  6. CLOFAZIMINE [Concomitant]
     Active Substance: CLOFAZIMINE
     Route: 065
     Dates: start: 200212
  7. CLOFAZIMINE [Concomitant]
     Active Substance: CLOFAZIMINE
     Indication: Product used for unknown indication
     Route: 065
     Dates: start: 20240807, end: 20241127
  8. ESTRADIOL [Concomitant]
     Active Substance: ESTRADIOL
     Indication: Product used for unknown indication
     Route: 065
  9. HYDROXYZINE [Concomitant]
     Active Substance: HYDROXYZINE HYDROCHLORIDE
     Indication: Product used for unknown indication
     Route: 065
  10. IMIPENEM [Concomitant]
     Active Substance: IMIPENEM
     Dosage: 1000 MILLIGRAM, BID
     Route: 065
     Dates: start: 20250308, end: 20250326
  11. IMIPENEM [Concomitant]
     Active Substance: IMIPENEM
     Indication: Product used for unknown indication
     Dosage: 500 MILLIGRAM, BID
     Route: 042
     Dates: start: 20240807, end: 20241023
  12. SODIUM CHLORIDE [Concomitant]
     Active Substance: SODIUM CHLORIDE
     Indication: Product used for unknown indication
     Route: 065
  13. VITAMIN B6 [Concomitant]
     Active Substance: PYRIDOXINE HYDROCHLORIDE
     Indication: Product used for unknown indication
     Route: 065

REACTIONS (4)
  - Drug-induced liver injury [Recovered/Resolved]
  - Deafness bilateral [Unknown]
  - Nausea [Unknown]
  - Incorrect product administration duration [Unknown]
